FAERS Safety Report 19002989 (Version 2)
Quarter: 2021Q1

REPORT INFORMATION
  Report Type: Report from Study
  Country: US (occurrence: US)
  Receive Date: 20210312
  Receipt Date: 20210315
  Transmission Date: 20210420
  Serious: Yes (Other)
  Sender: FDA-Public Use
  Company Number: US-ROCHE-2782005

PATIENT
  Age: 76 Year
  Sex: Male
  Weight: 93.9 kg

DRUGS (2)
  1. ATEZOLIZUMAB. [Suspect]
     Active Substance: ATEZOLIZUMAB
     Indication: BLADDER TRANSITIONAL CELL CARCINOMA
     Dosage: 25/AUG/2020 , LAST DOSE OF ADMINISTRATION
     Route: 042
     Dates: start: 20200602
  2. GEMCITABINE HYDROCHLORIDE. [Suspect]
     Active Substance: GEMCITABINE HYDROCHLORIDE
     Indication: BLADDER TRANSITIONAL CELL CARCINOMA
     Route: 042
     Dates: start: 20200702, end: 20200710

REACTIONS (1)
  - Keratitis [Recovering/Resolving]

NARRATIVE: CASE EVENT DATE: 20200827
